FAERS Safety Report 8501919-2 (Version None)
Quarter: 2012Q3

REPORT INFORMATION
  Report Type: 
  Country: None (occurrence: None)
  Receive Date: 20120702
  Receipt Date: 20120619
  Transmission Date: 20120928
  Serious: Yes (Other)
  Sender: FDA-Public Use
  Company Number: DKLU1082284

PATIENT
  Age: 22 Month
  Sex: Female

DRUGS (8)
  1. SABRIL [Suspect]
     Indication: PRODUCT USED FOR UNKNOWN INDICATION
     Dosage: 750 MG MILLIGRAM(S), 2 IN 1 D, ORAL
     Route: 048
     Dates: start: 20120201, end: 20120615
  2. OMEPRAZOLE [Concomitant]
  3. MVI MINERAL LIQUID (VITAMINS NOS) [Concomitant]
  4. BANZEL (RUFINAMIDE) [Concomitant]
  5. DIAZEPAM [Concomitant]
  6. BACLOFEN [Concomitant]
  7. VITAMIN D [Concomitant]
  8. FLOVENT [Concomitant]

REACTIONS (1)
  - RETINOGRAM ABNORMAL [None]
